FAERS Safety Report 20245102 (Version 1)
Quarter: 2021Q4

REPORT INFORMATION
  Report Type: Spontaneous
  Country: RS (occurrence: RS)
  Receive Date: 20211229
  Receipt Date: 20211229
  Transmission Date: 20220303
  Serious: Yes (Other)
  Sender: FDA-Public Use
  Company Number: RS-TEVA-2021-RS-1994631

PATIENT
  Age: 68 Year
  Sex: Male

DRUGS (3)
  1. CIPROFLOXACIN [Interacting]
     Active Substance: CIPROFLOXACIN
     Route: 065
  2. WARFARIN [Interacting]
     Active Substance: WARFARIN
     Route: 065
  3. FLUCONAZOLE [Interacting]
     Active Substance: FLUCONAZOLE
     Route: 065

REACTIONS (6)
  - Haemoptysis [Unknown]
  - Haematuria [Unknown]
  - Haematoma [Unknown]
  - Haematoma muscle [Unknown]
  - Drug level increased [Unknown]
  - Drug interaction [Unknown]
